FAERS Safety Report 11020356 (Version 1)
Quarter: 2015Q2

REPORT INFORMATION
  Report Type: Report from Study
  Country: US (occurrence: US)
  Receive Date: 20150413
  Receipt Date: 20150413
  Transmission Date: 20150821
  Serious: Yes (Other)
  Sender: FDA-Public Use
  Company Number: US-ROCHE-1563038

PATIENT
  Age: 57 Year
  Sex: Female

DRUGS (5)
  1. TRASTUZUMAB [Suspect]
     Active Substance: TRASTUZUMAB
     Dosage: MAINTANANCE DOSE, AFTER 3 WEEKS?TRASTUZUMAB EVERY 3 WEEKS (8 MG/KG LOADING DOSE TO 6 MG/KG MAINTANAN
     Route: 042
     Dates: end: 20150402
  2. PERTUZUMAB [Suspect]
     Active Substance: PERTUZUMAB
     Indication: HER-2 POSITIVE BREAST CANCER
     Dosage: LOADING DOSE ?PERTUZUMAB EVERY 3 WEEKS (840 MG AS A LOADING DOSE TO 420 MG MAINTANANCE DOSE)
     Route: 042
     Dates: start: 20110516
  3. TRASTUZUMAB [Suspect]
     Active Substance: TRASTUZUMAB
     Indication: HER-2 POSITIVE BREAST CANCER
     Dosage: LOADING DOSE?TRASTUZUMAB EVERY 3 WEEKS (8 MG/KG LOADING DOSE TO 6 MG/KG MAINTANANCE DOSE EVERY 3 WEE
     Route: 042
     Dates: start: 20110516
  4. DEXAMETHASONE. [Concomitant]
     Active Substance: DEXAMETHASONE
     Route: 065
     Dates: start: 20110516
  5. PERTUZUMAB [Suspect]
     Active Substance: PERTUZUMAB
     Dosage: MAINTANANCE DOSE ?PERTUZUMAB EVERY 3 WEEKS (840 MG AS A LOADING DOSE TO 420 MG MAINTANANCE DOSE).
     Route: 042
     Dates: end: 20150402

REACTIONS (1)
  - Ear pain [Recovered/Resolved]

NARRATIVE: CASE EVENT DATE: 20150402
